FAERS Safety Report 11203538 (Version 2)
Quarter: 2019Q2

REPORT INFORMATION
  Report Type: Spontaneous
  Country: FR (occurrence: FR)
  Receive Date: 20150619
  Receipt Date: 20190614
  Transmission Date: 20190711
  Serious: Yes (Congenital Anomaly, Other)
  Sender: FDA-Public Use
  Company Number: FR-ABBVIE-15P-056-1412138-00

PATIENT
  Age: 9 Year
  Sex: Male

DRUGS (1)
  1. VALPROATE SODIUM. [Suspect]
     Active Substance: VALPROATE SODIUM
     Indication: MATERNAL EXPOSURE TIMING UNSPECIFIED
     Route: 064

REACTIONS (6)
  - Autism spectrum disorder [Not Recovered/Not Resolved]
  - Foot deformity [Unknown]
  - Foetal exposure during pregnancy [Unknown]
  - Auditory disorder [Unknown]
  - Dysmorphism [Unknown]
  - Enuresis [Unknown]

NARRATIVE: CASE EVENT DATE: 2015
